FAERS Safety Report 7152306-3 (Version None)
Quarter: 2010Q4

REPORT INFORMATION
  Report Type: 
  Country: None (occurrence: None)
  Receive Date: 20101123
  Receipt Date: 20101108
  Transmission Date: 20110411
  Serious: Yes (Hospitalization)
  Sender: FDA-Public Use
  Company Number: DSA_44327_2010

PATIENT
  Age: 85 Year
  Sex: Male

DRUGS (8)
  1. ENALAPRIL MALEATE [Suspect]
     Indication: ESSENTIAL HYPERTENSION
     Dosage: (5 MG QD ORAL)
     Route: 048
     Dates: end: 20100601
  2. DUROFERON (DUROFERON-FERROUS SO4) (NOT SPECIFIED) [Suspect]
     Indication: ANAEMIA
     Dosage: (DF ORAL)
     Route: 048
  3. ALLOPURINOL [Suspect]
     Indication: PRODUCT USED FOR UNKNOWN INDICATION
     Dosage: (100 MG, DF)
     Dates: end: 20100601
  4. ASASANTIN [Concomitant]
  5. EMCONCOR [Concomitant]
  6. FURIX [Concomitant]
  7. XALATAN [Concomitant]
  8. SIMVASTATIN [Concomitant]

REACTIONS (4)
  - CONDITION AGGRAVATED [None]
  - DIARRHOEA [None]
  - ECZEMA [None]
  - ORTHOSTATIC HYPOTENSION [None]
